FAERS Safety Report 20213661 (Version 2)
Quarter: 2021Q4

REPORT INFORMATION
  Report Type: Report from Study
  Country: ES (occurrence: ES)
  Receive Date: 20211221
  Receipt Date: 20211222
  Transmission Date: 20220303
  Serious: Yes (Life-Threatening, Hospitalization)
  Sender: FDA-Public Use
  Company Number: ES-PFIZER INC-202101789834

PATIENT
  Age: 69 Year
  Sex: Male
  Weight: 64.3 kg

DRUGS (21)
  1. IRINOTECAN HYDROCHLORIDE [Suspect]
     Active Substance: IRINOTECAN HYDROCHLORIDE
     Indication: Pancreatic carcinoma metastatic
     Dosage: 150 MG/M2, 1 IN 2 WK
     Route: 042
     Dates: start: 20211019, end: 20211019
  2. OXALIPLATIN [Suspect]
     Active Substance: OXALIPLATIN
     Indication: Pancreatic carcinoma metastatic
     Dosage: 85 MG/M2, 1 IN 2 WK
     Route: 042
     Dates: start: 20211019, end: 20211019
  3. GILORALIMAB [Suspect]
     Active Substance: GILORALIMAB
     Indication: Pancreatic carcinoma metastatic
     Dosage: 0.1 MG/KG,1 IN 4 WK
     Route: 042
     Dates: start: 20211021, end: 20211021
  4. BUDIGALIMAB [Suspect]
     Active Substance: BUDIGALIMAB
     Indication: Pancreatic carcinoma metastatic
     Dosage: 500 MG,1 IN 4 WK
     Route: 042
     Dates: start: 20211021, end: 20211021
  5. LEUCOVORIN [Suspect]
     Active Substance: LEUCOVORIN
     Indication: Pancreatic carcinoma metastatic
     Dosage: 748 MG, 1 IN 2 WK
     Route: 042
     Dates: start: 20211019, end: 20211019
  6. FLUOROURACIL [Suspect]
     Active Substance: FLUOROURACIL
     Indication: Pancreatic carcinoma metastatic
     Dosage: 748 MG, 1 IN 2 WK
     Route: 042
     Dates: start: 20211019, end: 20211019
  7. INSULIN NOS [Concomitant]
     Active Substance: INSULIN NOS
     Indication: Type 2 diabetes mellitus
     Dosage: 20 IU, 1 IN 1 D
     Route: 042
     Dates: start: 20211006
  8. METFORMIN [Concomitant]
     Active Substance: METFORMIN HYDROCHLORIDE
     Indication: Type 2 diabetes mellitus
     Dosage: 2000 MG (1000 MG, 2 IN 1 D)
     Route: 048
     Dates: start: 20211006
  9. SITAGLIPTIN [Concomitant]
     Active Substance: SITAGLIPTIN
     Indication: Type 2 diabetes mellitus
     Dosage: 100 MG (50 MG, 2 IN 1 D)
     Route: 048
     Dates: start: 20211006
  10. GLYCOPYRRONIUM [Concomitant]
     Active Substance: GLYCOPYRRONIUM
     Indication: Chronic obstructive pulmonary disease
     Dosage: 348 MCG (174 MCG, 2 IN 1 D)
     Route: 048
     Dates: start: 20211006
  11. FORMOTEROL [Concomitant]
     Active Substance: FORMOTEROL
     Indication: Chronic obstructive pulmonary disease
     Dosage: 4 MCG (2 MCG, 2 IN 1 D)
     Route: 048
     Dates: start: 20211006
  12. BECLOMETHASONE DIPROPIONATE [Concomitant]
     Active Substance: BECLOMETHASONE DIPROPIONATE
     Indication: Chronic obstructive pulmonary disease
     Dosage: 36 MCG (18 MCG, 2 IN 1 D)
     Route: 048
     Dates: start: 20211006
  13. BUDESONIDE [Concomitant]
     Active Substance: BUDESONIDE
     Indication: Dyspnoea
     Dosage: 100 MCG,1 AS REQUIRED
     Route: 045
     Dates: start: 20211006
  14. OMEPRAZOLE [Concomitant]
     Active Substance: OMEPRAZOLE
     Indication: Prophylaxis
     Dosage: 20 MG, 1 IN 1 D
     Route: 048
     Dates: start: 20211006
  15. ENALAPRIL [Concomitant]
     Active Substance: ENALAPRIL
     Indication: Hypertension
     Dosage: 20 MG, 1 IN 1 D
     Route: 048
     Dates: start: 20211006
  16. HYDROCHLOROTHIAZIDE [Concomitant]
     Active Substance: HYDROCHLOROTHIAZIDE
     Indication: Hypertension
     Dosage: 12.5 MG, 1 IN 1 D
     Route: 048
     Dates: start: 20211006
  17. ATORVASTATIN [Concomitant]
     Active Substance: ATORVASTATIN
     Indication: Dyslipidaemia
     Dosage: 40 MG, 1 IN 1 D
     Route: 048
     Dates: start: 20211006
  18. PANCRELIPASE [Concomitant]
     Active Substance: PANCRELIPASE
     Indication: Pancreatic failure
     Dosage: 6 TABLET (2 TABLET, 3 IN 1 D)
     Route: 048
     Dates: start: 20211006
  19. DEXAMETHASONE [Concomitant]
     Active Substance: DEXAMETHASONE
     Indication: Asthenia
     Dosage: 8 MG, 1 IN 1 D
     Route: 048
     Dates: start: 20211006
  20. ONDANSETRON [Concomitant]
     Active Substance: ONDANSETRON
     Indication: Prophylaxis of nausea and vomiting
     Dosage: 16 MG (8 MG, 2 IN 1 D)
     Route: 048
     Dates: start: 20211006
  21. BUDESONIDE [Concomitant]
     Active Substance: BUDESONIDE
     Indication: Chronic obstructive pulmonary disease
     Dosage: 100 MG, 1 AS REQUIRED
     Route: 045
     Dates: start: 2021

REACTIONS (2)
  - Neutropenia [Recovered/Resolved]
  - Enteritis [Recovered/Resolved]

NARRATIVE: CASE EVENT DATE: 20211029
